FAERS Safety Report 22530814 (Version 1)
Quarter: 2023Q2

REPORT INFORMATION
  Report Type: Spontaneous
  Country: KR (occurrence: KR)
  Receive Date: 20230607
  Receipt Date: 20230607
  Transmission Date: 20230722
  Serious: Yes (Hospitalization)
  Sender: FDA-Public Use
  Company Number: KR-ORGANON-O2306KOR000187

PATIENT
  Age: 84 Year
  Sex: Female
  Weight: 47 kg

DRUGS (8)
  1. HYDROCHLOROTHIAZIDE\LOSARTAN POTASSIUM [Suspect]
     Active Substance: HYDROCHLOROTHIAZIDE\LOSARTAN POTASSIUM
     Indication: Essential hypertension
     Dosage: UNK
     Route: 048
     Dates: start: 20160823
  2. MIRABEGRON [Suspect]
     Active Substance: MIRABEGRON
     Indication: Bladder disorder
     Dosage: 1 FORMULATION, QD, SUSTAINED-RELEASE FILM-COATED TABLETS
     Route: 048
     Dates: start: 20161017
  3. MONTELUKAST SODIUM [Concomitant]
     Active Substance: MONTELUKAST SODIUM
     Indication: Chronic obstructive pulmonary disease
     Dosage: UNK, FILM-COATED TABLET
     Route: 048
     Dates: start: 20160823
  4. ALFUZOSIN HYDROCHLORIDE [Concomitant]
     Active Substance: ALFUZOSIN HYDROCHLORIDE
     Indication: Bladder disorder
     Dosage: UNK
     Route: 048
     Dates: start: 20160111
  5. ACETYLCYSTEINE [Concomitant]
     Active Substance: ACETYLCYSTEINE
     Indication: Chronic obstructive pulmonary disease
     Dosage: UNK, HARD CAPSULE, POWDER
     Route: 048
     Dates: start: 20160823
  6. ESOMEPRAZOLE MAGNESIUM [Concomitant]
     Active Substance: ESOMEPRAZOLE MAGNESIUM
     Indication: Prophylaxis
     Dosage: UNK
     Route: 048
     Dates: start: 20160823
  7. THEOBROMINE [Concomitant]
     Active Substance: THEOBROMINE
     Indication: Chronic obstructive pulmonary disease
     Dosage: UNK, HARD CAPSULE, POWDER
     Route: 048
     Dates: start: 20160823
  8. CARVEDILOL [Concomitant]
     Active Substance: CARVEDILOL
     Indication: Essential hypertension
     Dosage: UNK, UNCOATED TABLET
     Route: 048
     Dates: start: 20170106

REACTIONS (1)
  - Lung disorder [Recovered/Resolved]

NARRATIVE: CASE EVENT DATE: 20170105
